FAERS Safety Report 5322814-6 (Version None)
Quarter: 2007Q2

REPORT INFORMATION
  Report Type: 
  Country: None (occurrence: None)
  Receive Date: 20070511
  Receipt Date: 20070501
  Transmission Date: 20071010
  Serious: Yes (Hospitalization)
  Sender: FDA-Public Use
  Company Number: IN-PFIZER INC-2007032222

PATIENT
  Age: 64 Year
  Sex: Male
  Weight: 70 kg

DRUGS (7)
  1. DOLONEX DT [Suspect]
     Indication: ARTHRALGIA
     Route: 048
     Dates: start: 20070124, end: 20070214
  2. DOLONEX DT [Suspect]
     Indication: ARTHRITIS
  3. ALL OTHER THERAPEUTIC PRODUCTS [Concomitant]
     Route: 061
  4. ECOSPRIN [Concomitant]
     Route: 048
  5. CLOPIDOGREL [Concomitant]
     Route: 048
  6. RANITIDINE [Concomitant]
     Route: 048
  7. ASPIRIN [Concomitant]
     Route: 048

REACTIONS (9)
  - CHEST DISCOMFORT [None]
  - CIRCULATORY COLLAPSE [None]
  - DUODENAL ULCER [None]
  - HAEMOGLOBIN DECREASED [None]
  - HYPOTENSION [None]
  - MELAENA [None]
  - NAUSEA [None]
  - PALLOR [None]
  - PULSE PRESSURE DECREASED [None]
